FAERS Safety Report 9669455 (Version 2)
Quarter: 2013Q4

REPORT INFORMATION
  Report Type: Spontaneous
  Country: PE (occurrence: PE)
  Receive Date: 20131105
  Receipt Date: 20131105
  Transmission Date: 20140711
  Serious: Yes (Other)
  Sender: FDA-Public Use
  Company Number: PE-PFIZER INC-2013287774

PATIENT
  Age: 67 Year
  Sex: Female

DRUGS (2)
  1. NEURONTIN [Suspect]
     Dosage: 300 MG, 2X/DAY
     Route: 048
     Dates: end: 201309
  2. LYRICA [Suspect]
     Dosage: 75 MG, 1X/DAY
     Route: 048
     Dates: start: 201305

REACTIONS (3)
  - Deafness [Recovered/Resolved]
  - Headache [Recovered/Resolved]
  - Feeling abnormal [Recovered/Resolved]
